FAERS Safety Report 18214840 (Version 1)
Quarter: 2020Q3

REPORT INFORMATION
  Report Type: Spontaneous
  Country: US (occurrence: US)
  Receive Date: 20200831
  Receipt Date: 20200831
  Transmission Date: 20201103
  Serious: No
  Sender: FDA-Public Use
  Company Number: US-GALDERMA-US2020005829

PATIENT
  Age: 22 Year
  Sex: Male

DRUGS (2)
  1. EPIDUO FORTE [Suspect]
     Active Substance: ADAPALENE\BENZOYL PEROXIDE
     Indication: ACNE
     Dosage: 0.3%/2.5%
     Route: 061
     Dates: start: 201908, end: 201911
  2. CETAPHIL GENTLE CLEANSING ANTIBACTERIAL BAR [Suspect]
     Active Substance: TRICLOSAN
     Indication: PRODUCT USED FOR UNKNOWN INDICATION
     Route: 061

REACTIONS (2)
  - Expired product administered [Recovered/Resolved]
  - Drug ineffective [Unknown]

NARRATIVE: CASE EVENT DATE: 201908
